FAERS Safety Report 21792955 (Version 1)
Quarter: 2022Q4

REPORT INFORMATION
  Report Type: Spontaneous
  Country: US (occurrence: DE)
  Receive Date: 20221229
  Receipt Date: 20221229
  Transmission Date: 20230113
  Serious: Yes (Other)
  Sender: FDA-Public Use
  Company Number: US-ALKEM LABORATORIES LIMITED-DE-ALKEM-2022-10708

PATIENT
  Age: 22 Day
  Sex: Female

DRUGS (1)
  1. SIROLIMUS [Suspect]
     Active Substance: SIROLIMUS
     Indication: Lymphatic system neoplasm
     Dosage: 0.8 MILLIGRAM/SQ. METER, BID (8 MONTHS)
     Route: 065

REACTIONS (3)
  - Cellulitis [Unknown]
  - Peripheral oedema neonatal [Unknown]
  - Hypertension [Unknown]
